FAERS Safety Report 8657621 (Version 2)
Quarter: 2013Q1

REPORT INFORMATION
  Report Type: Spontaneous
  Country: DE (occurrence: DE)
  Receive Date: 20120710
  Receipt Date: 20130205
  Transmission Date: 20140127
  Serious: Yes (Hospitalization)
  Sender: FDA-Public Use
  Company Number: DE-ELI_LILLY_AND_COMPANY-DE201206009458

PATIENT
  Sex: Female

DRUGS (6)
  1. FORSTEO [Suspect]
     Indication: OSTEOPOROSIS
     Dosage: UNK, QD
     Route: 058
     Dates: start: 20111219, end: 20121213
  2. FORSTEO [Suspect]
     Dosage: UNK
     Dates: start: 201301
  3. MORPHINE [Concomitant]
  4. VIGANTOLETTEN [Concomitant]
  5. THEOPHYLLIN [Concomitant]
  6. DEKRISTOL [Concomitant]
     Dosage: UNK, OTHER

REACTIONS (5)
  - Breast abscess [Unknown]
  - Breast inflammation [Not Recovered/Not Resolved]
  - Anaemia [Not Recovered/Not Resolved]
  - Weight decreased [Unknown]
  - Pain in extremity [Not Recovered/Not Resolved]
